FAERS Safety Report 12485024 (Version 1)
Quarter: 2016Q2

REPORT INFORMATION
  Report Type: Spontaneous
  Country: US (occurrence: US)
  Receive Date: 20160621
  Receipt Date: 20160621
  Transmission Date: 20160815
  Serious: Yes (Other)
  Sender: FDA-Public Use
  Company Number: US-GLAXOSMITHKLINE-US2016GSK082200

PATIENT
  Age: 15 Year
  Sex: Female
  Weight: 47.62 kg

DRUGS (3)
  1. SERTRALINE [Suspect]
     Active Substance: SERTRALINE HYDROCHLORIDE
     Indication: DEPRESSION
     Dosage: 12 MG, UNK
     Dates: start: 20160524, end: 20160525
  2. KLONOPIN [Suspect]
     Active Substance: CLONAZEPAM
     Indication: PRODUCT USED FOR UNKNOWN INDICATION
     Dosage: 0.25 MG, QD
     Dates: start: 20160523, end: 20160523
  3. FLONASE [Suspect]
     Active Substance: FLUTICASONE PROPIONATE
     Indication: SNORING

REACTIONS (6)
  - Panic attack [Unknown]
  - Respiratory tract irritation [Unknown]
  - Condition aggravated [Unknown]
  - Choking [Unknown]
  - Hyperventilation [Unknown]
  - Dyspnoea [Unknown]

NARRATIVE: CASE EVENT DATE: 20160525
